FAERS Safety Report 7678190-7 (Version None)
Quarter: 2011Q3

REPORT INFORMATION
  Report Type: 
  Country: None (occurrence: None)
  Receive Date: 20110811
  Receipt Date: 20110404
  Transmission Date: 20111222
  Serious: Yes (Other)
  Sender: FDA-Public Use
  Company Number: US-BAYER-201020402NA

PATIENT
  Sex: Female
  Weight: 104.5 kg

DRUGS (18)
  1. RENA-VITE [Concomitant]
  2. OMNISCAN [Suspect]
     Indication: PRODUCT USED FOR UNKNOWN INDICATION
  3. PHOSLO [Concomitant]
  4. RENAGEL [Concomitant]
     Dosage: WITH MEALS
  5. FERROUS SULFATE TAB [Concomitant]
     Dates: start: 20060201, end: 20090801
  6. PROHANCE [Suspect]
     Indication: PRODUCT USED FOR UNKNOWN INDICATION
  7. ARANESP [Concomitant]
     Route: 042
  8. MAGNEVIST [Suspect]
     Indication: PRODUCT USED FOR UNKNOWN INDICATION
  9. COUMADIN [Concomitant]
  10. PROGRAF [Concomitant]
     Dosage: 4 TABLETS TWICE DAILY
  11. EPOGEN [Concomitant]
     Dates: start: 20060901, end: 20090801
  12. SENSIPAR [Concomitant]
  13. METOPROLOL TARTRATE [Concomitant]
     Dates: start: 20090901
  14. MYCOPHENOLATE MOFETIL [Concomitant]
  15. OPTIMARK [Suspect]
     Indication: PRODUCT USED FOR UNKNOWN INDICATION
  16. MULTIHANCE [Suspect]
     Indication: PRODUCT USED FOR UNKNOWN INDICATION
  17. LASIX [Concomitant]
  18. VITAMIN D [Concomitant]

REACTIONS (10)
  - NEPHROGENIC SYSTEMIC FIBROSIS [None]
  - SKIN PLAQUE [None]
  - MOBILITY DECREASED [None]
  - FIBROSIS [None]
  - PAIN OF SKIN [None]
  - GENERAL PHYSICAL HEALTH DETERIORATION [None]
  - PAIN [None]
  - SKIN HYPERTROPHY [None]
  - ERYTHEMA [None]
  - PAIN IN EXTREMITY [None]
